FAERS Safety Report 5831861-7 (Version None)
Quarter: 2008Q3

REPORT INFORMATION
  Report Type: 
  Country: None (occurrence: None)
  Receive Date: 20080804
  Receipt Date: 20080731
  Transmission Date: 20090109
  Serious: Yes (Death, Other)
  Sender: FDA-Public Use
  Company Number: PH-BRISTOL-MYERS SQUIBB COMPANY-14283949

PATIENT
  Age: 76 Year
  Sex: Female

DRUGS (4)
  1. CARBOPLATIN [Suspect]
     Indication: NON-SMALL CELL LUNG CANCER
     Dosage: INITIATED ON 29APR08, DUR-9 WEEKS 2 DAYS
     Route: 042
     Dates: start: 20080702, end: 20080702
  2. PACLITAXEL [Suspect]
     Dosage: INITIATED ON 29APR08, DUR-9 WEEKS 2 DAYS, FORMULATION- INFUSION
     Route: 042
     Dates: start: 20080702, end: 20080702
  3. IRESSA [Suspect]
     Indication: NON-SMALL CELL LUNG CANCER
     Dosage: 250MG FROM 29MAY-30JUN06,10JUL-15AUG06,29AUG-18DEC06,29DEC06-9MAR07,23MAR-19APR07,03MAY-27JUL07
     Route: 048
     Dates: start: 20070503, end: 20070727
  4. TRAMADOL HCL [Concomitant]
     Indication: BACK PAIN
     Route: 048
     Dates: start: 20071015

REACTIONS (3)
  - ACUTE RESPIRATORY FAILURE [None]
  - HYPOTENSION [None]
  - MALIGNANT NEOPLASM PROGRESSION [None]
